FAERS Safety Report 11981155 (Version 5)
Quarter: 2016Q3

REPORT INFORMATION
  Report Type: Spontaneous
  Country: BE (occurrence: BE)
  Receive Date: 20160129
  Receipt Date: 20160706
  Transmission Date: 20161109
  Serious: Yes (Other)
  Sender: FDA-Public Use
  Company Number: BE-TAKEDA-2016TUS001381

PATIENT
  Age: 33 Year
  Sex: Female

DRUGS (4)
  1. ENTYVIO [Suspect]
     Active Substance: VEDOLIZUMAB
     Indication: ACUTE HAEMORRHAGIC ULCERATIVE COLITIS
     Dosage: 300 MG, UNK
     Route: 042
     Dates: start: 20150925
  2. VITAMIN D [Concomitant]
     Active Substance: CHOLECALCIFEROL
     Dosage: UNK
  3. MEDROL [Concomitant]
     Active Substance: METHYLPREDNISOLONE
     Dosage: UNK MG, UNK
     Route: 048
     Dates: start: 20151103
  4. MESALAZINE [Concomitant]
     Active Substance: MESALAMINE
     Dosage: 3 G, UNK
     Route: 048

REACTIONS (2)
  - Uveitis [Recovering/Resolving]
  - Autoimmune haemolytic anaemia [Recovering/Resolving]

NARRATIVE: CASE EVENT DATE: 20151103
